FAERS Safety Report 6060945-6 (Version None)
Quarter: 2009Q1

REPORT INFORMATION
  Report Type: 
  Country: None (occurrence: None)
  Receive Date: 20090129
  Receipt Date: 20090129
  Transmission Date: 20090719
  Serious: Yes (Hospitalization)
  Sender: FDA-Public Use
  Company Number: None

PATIENT
  Sex: Female
  Weight: 79 kg

DRUGS (1)
  1. CYTARABINE [Suspect]
     Dosage: 32760 MG
     Dates: end: 20090109

REACTIONS (14)
  - BACTERIA BLOOD IDENTIFIED [None]
  - BLOOD CULTURE POSITIVE [None]
  - FEBRILE NEUTROPENIA [None]
  - FUNGAL INFECTION [None]
  - HAEMATOCRIT DECREASED [None]
  - HAEMOGLOBIN DECREASED [None]
  - HEADACHE [None]
  - LUNG DISORDER [None]
  - NAUSEA [None]
  - PAIN IN JAW [None]
  - PETECHIAE [None]
  - PLATELET COUNT DECREASED [None]
  - STREPTOCOCCAL INFECTION [None]
  - VIRAL INFECTION [None]
